FAERS Safety Report 4698825-0 (Version None)
Quarter: 2005Q2

REPORT INFORMATION
  Report Type: 
  Country: None (occurrence: None)
  Receive Date: 20050623
  Receipt Date: 20050610
  Transmission Date: 20051028
  Serious: Yes (Other)
  Sender: FDA-Public Use
  Company Number: 2005086891

PATIENT
  Sex: Female

DRUGS (1)
  1. LISTERINE (MENTHOL, METHYL SALICYLATE, EUCALYPTOL, THYMOL) [Suspect]
     Indication: POISONING
     Dosage: 1/2 LITER ONCE, ORAL
     Route: 048
     Dates: start: 20050610, end: 20050610

REACTIONS (3)
  - FEELING ABNORMAL [None]
  - INTENTIONAL MISUSE [None]
  - OVERDOSE [None]
